FAERS Safety Report 11852532 (Version 7)
Quarter: 2016Q2

REPORT INFORMATION
  Report Type: Report from Study
  Country: JP (occurrence: JP)
  Receive Date: 20151218
  Receipt Date: 20160429
  Transmission Date: 20160815
  Serious: Yes (Hospitalization)
  Sender: FDA-Public Use
  Company Number: JP-UCBSA-2015041240

PATIENT
  Age: 37 Year
  Sex: Female
  Weight: 42 kg

DRUGS (14)
  1. METHYCOBAL [Concomitant]
     Active Substance: METHYLCOBALAMIN
     Indication: BONE MARROW FAILURE
     Dosage: 15 MG, ONCE DAILY (QD)
     Route: 048
     Dates: start: 20151028
  2. FUDOSTEINE [Concomitant]
     Active Substance: FUDOSTEINE
     Indication: PNEUMONIA
     Dosage: UNK
     Dates: start: 20151205
  3. FOLIAMIN [Concomitant]
     Active Substance: FOLIC ACID
     Indication: BONE MARROW FAILURE
     Dosage: 1500 MG, ONCE DAILY (QD)
     Route: 048
     Dates: start: 20151028
  4. LEVOFLOXACIN. [Concomitant]
     Active Substance: LEVOFLOXACIN
     Indication: PNEUMONIA
     Dosage: UNK
     Dates: start: 20151205
  5. ACETAMINOPHEN W/CAFF./PROMETHAZINE/SALICYLAM. [Concomitant]
     Indication: HEADACHE
     Dosage: UNK
     Dates: start: 20151202
  6. E KEPPRA [Concomitant]
     Active Substance: LEVETIRACETAM
     Indication: EPILEPSY
     Dosage: 2000 MG, ONCE DAILY (QD)
     Route: 048
     Dates: start: 20121109
  7. LACOSAMIDE EP [Suspect]
     Active Substance: LACOSAMIDE
     Indication: EPILEPSY
     Dosage: 200 MG, 2X/DAY (BID)
     Route: 048
     Dates: start: 20130805, end: 20131124
  8. L-CARBOCYSTEINE [Concomitant]
     Active Substance: CARBOCYSTEINE
     Indication: PRODUCT USED FOR UNKNOWN INDICATION
     Dosage: UNK
     Dates: start: 20151207
  9. TEGRETOL [Concomitant]
     Active Substance: CARBAMAZEPINE
     Indication: EPILEPSY
     Dosage: 800 MG, ONCE DAILY (QD)
     Route: 048
     Dates: start: 20121109
  10. CLOFEDANOL HYDROCHLORIDE [Concomitant]
     Active Substance: CHLOPHEDIANOL HYDROCHLORIDE
     Indication: PNEUMONIA
     Dosage: UNK
     Dates: start: 20151207
  11. DIMEMORFAN PHOSPHATE [Concomitant]
     Active Substance: DIMEMORFAN PHOSPHATE
     Indication: PNEUMONIA
     Dosage: UNK
     Dates: start: 20151205
  12. LACOSAMIDE EP [Suspect]
     Active Substance: LACOSAMIDE
     Dosage: 100 MG, 2X/DAY (BID)
     Route: 048
     Dates: start: 20131125
  13. MYSTAN [Concomitant]
     Active Substance: CLOBAZAM
     Indication: EPILEPSY
     Dosage: 30 MG, ONCE DAILY (QD)
     Route: 048
     Dates: start: 20140204
  14. LOXOPROFEN SODIUM [Concomitant]
     Active Substance: LOXOPROFEN SODIUM
     Indication: PYREXIA
     Dosage: UNK, AS NEEDED (PRN)
     Dates: start: 20151202

REACTIONS (2)
  - Pneumonia [Recovered/Resolved]
  - Bradycardia [Recovered/Resolved]

NARRATIVE: CASE EVENT DATE: 20151205
